FAERS Safety Report 8177572-7 (Version None)
Quarter: 2012Q1

REPORT INFORMATION
  Report Type: 
  Country: None (occurrence: None)
  Receive Date: 20120301
  Receipt Date: 20120217
  Transmission Date: 20120608
  Serious: Yes (Other)
  Sender: FDA-Public Use
  Company Number: PHHY2012JP016232

PATIENT

DRUGS (1)
  1. VOLTAREN [Suspect]

REACTIONS (1)
  - NEONATAL DISORDER [None]
